FAERS Safety Report 5301689-5 (Version None)
Quarter: 2007Q2

REPORT INFORMATION
  Report Type: 
  Country: None (occurrence: None)
  Receive Date: 20070419
  Receipt Date: 20070412
  Transmission Date: 20071010
  Serious: Yes (Hospitalization, Other)
  Sender: FDA-Public Use
  Company Number: HQWYE554113APR07

PATIENT
  Sex: Female

DRUGS (2)
  1. PREMARIN [Suspect]
     Indication: HORMONE REPLACEMENT THERAPY
     Dosage: 0.3MG, FREQUENCY NOT PROVIDED
     Route: 048
     Dates: start: 19670101, end: 20040101
  2. PREMARIN [Suspect]
     Dosage: 0.625MG, FREQUENCY NOT PROVIDED
     Route: 048

REACTIONS (1)
  - NEOPLASM MALIGNANT [None]
